FAERS Safety Report 10305617 (Version 1)
Quarter: 2014Q3

REPORT INFORMATION
  Report Type: Spontaneous
  Country: US (occurrence: None)
  Receive Date: 20140711
  Receipt Date: 20140711
  Transmission Date: 20150326
  Serious: Yes (Hospitalization, Other)
  Sender: FDA-Public Use
  Company Number: ADR-2014-01193

PATIENT
  Age: 69 Year
  Sex: Female

DRUGS (1)
  1. BACLOFEN. [Suspect]
     Active Substance: BACLOFEN
     Indication: MUSCLE SPASTICITY

REACTIONS (8)
  - Pain [None]
  - Unevaluable event [None]
  - Muscle spasms [None]
  - Implant site bruising [None]
  - Fall [None]
  - Delusion [None]
  - Therapeutic response changed [None]
  - Hemiplegia [None]
